FAERS Safety Report 13226698 (Version 2)
Quarter: 2017Q1

REPORT INFORMATION
  Report Type: Report from Study
  Country: US (occurrence: US)
  Receive Date: 20170213
  Receipt Date: 20170221
  Transmission Date: 20170428
  Serious: Yes (Hospitalization)
  Sender: FDA-Public Use
  Company Number: US-JNJFOC-20170119545

PATIENT
  Age: 74 Year
  Sex: Female

DRUGS (13)
  1. CARVEDILOL. [Concomitant]
     Active Substance: CARVEDILOL
  2. AUGMENTIN [Concomitant]
     Active Substance: AMOXICILLIN\CLAVULANATE POTASSIUM
  3. PRAVASTATIN. [Concomitant]
     Active Substance: PRAVASTATIN
  4. ASPIRIN 81 [Concomitant]
     Active Substance: ASPIRIN
  5. IMBRUVICA [Suspect]
     Active Substance: IBRUTINIB
     Indication: WALDENSTROM^S MACROGLOBULINAEMIA
     Route: 048
     Dates: start: 20170113, end: 20170115
  6. LORAZEMED [Concomitant]
  7. ZOLPIDEM [Concomitant]
     Active Substance: ZOLPIDEM\ZOLPIDEM TARTRATE
  8. OMEPRAZOLE. [Concomitant]
     Active Substance: OMEPRAZOLE
  9. ONDANSETRON [Concomitant]
     Active Substance: ONDANSETRON
  10. ISOSORBIDE. [Concomitant]
     Active Substance: ISOSORBIDE
  11. MELATONIN [Concomitant]
     Active Substance: MELATONIN
  12. LATANOPROST. [Concomitant]
     Active Substance: LATANOPROST
  13. NITROGLYCERIN. [Concomitant]
     Active Substance: NITROGLYCERIN

REACTIONS (5)
  - Hiatus hernia [Unknown]
  - Melaena [Recovering/Resolving]
  - Pneumonia [Unknown]
  - Nausea [Recovering/Resolving]
  - Gastritis [Unknown]

NARRATIVE: CASE EVENT DATE: 20170113
